FAERS Safety Report 5936846-8 (Version None)
Quarter: 2008Q4

REPORT INFORMATION
  Report Type: 
  Country: None (occurrence: None)
  Receive Date: 20081029
  Receipt Date: 20071024
  Transmission Date: 20090506
  Serious: Yes (Death)
  Sender: FDA-Public Use
  Company Number: GXBR2007US02015

PATIENT
  Age: 77 Year
  Sex: Male

DRUGS (1)
  1. AMIODARONE HCL [Suspect]
     Indication: HEART RATE DECREASED
     Dosage: 200 MG,QD,ORAL
     Route: 048
     Dates: start: 20030101, end: 20040324

REACTIONS (11)
  - ACTIVITIES OF DAILY LIVING IMPAIRED [None]
  - BRONCHIAL DISORDER [None]
  - COMPUTERISED TOMOGRAM ABNORMAL [None]
  - COUGH [None]
  - DRUG TOXICITY [None]
  - DYSPNOEA [None]
  - FATIGUE [None]
  - HAEMOPTYSIS [None]
  - IDIOPATHIC PULMONARY FIBROSIS [None]
  - RENAL FAILURE [None]
  - SEPSIS [None]
